FAERS Safety Report 14751283 (Version 2)
Quarter: 2018Q2

REPORT INFORMATION
  Report Type: Spontaneous
  Country: GB (occurrence: GB)
  Receive Date: 20180412
  Receipt Date: 20180507
  Transmission Date: 20180711
  Serious: Yes (Death)
  Sender: FDA-Public Use
  Company Number: GB-MYLANLABS-2018M1022174

PATIENT
  Age: 23 Year
  Sex: Female

DRUGS (2)
  1. PREGABALIN. [Suspect]
     Active Substance: PREGABALIN
     Indication: PRODUCT USED FOR UNKNOWN INDICATION
     Dosage: DOSE AND DOSAGE FORM UNKNOWN
  2. LOPERAMIDE [Suspect]
     Active Substance: LOPERAMIDE
     Indication: PRODUCT USED FOR UNKNOWN INDICATION
     Dosage: UNK

REACTIONS (10)
  - Loss of consciousness [Fatal]
  - Cardiac arrest [Fatal]
  - Breath sounds abnormal [Fatal]
  - Respiratory arrest [Fatal]
  - Brain injury [Fatal]
  - Pallor [Fatal]
  - Drug level increased [Fatal]
  - Toxicity to various agents [Fatal]
  - Skin discolouration [Fatal]
  - Pneumonia [Fatal]

NARRATIVE: CASE EVENT DATE: 201710
